FAERS Safety Report 9118386 (Version 1)
Quarter: 2013Q1

REPORT INFORMATION
  Report Type: Spontaneous
  Country: US (occurrence: None)
  Receive Date: 20130221
  Receipt Date: 20130221
  Transmission Date: 20140127
  Serious: Yes (Death)
  Sender: FDA-Public Use
  Company Number: None

PATIENT
  Age: 72 Year
  Sex: Male

DRUGS (11)
  1. VOTRIENT [Suspect]
     Route: 048
     Dates: start: 20101209, end: 20130116
  2. VOTRIENT [Suspect]
     Route: 048
     Dates: start: 20101209, end: 20130116
  3. VOTRIENT [Suspect]
     Route: 048
     Dates: start: 20101209, end: 20130116
  4. VOTRIENT [Suspect]
     Route: 048
     Dates: start: 20101209, end: 20130116
  5. VOTRIENT [Suspect]
     Route: 048
     Dates: start: 20101209, end: 20130116
  6. VOTRIENT [Suspect]
     Route: 048
     Dates: start: 20101209, end: 20130116
  7. LOSARTAN [Concomitant]
  8. LEVETIRACETA [Concomitant]
  9. SPIRONOLACTONE [Concomitant]
  10. LEVOTHYROXINE [Concomitant]
  11. ATENOLOL [Concomitant]

REACTIONS (1)
  - Disease progression [None]
